FAERS Safety Report 15396963 (Version 1)
Quarter: 2018Q3

REPORT INFORMATION
  Report Type: Spontaneous
  Country: US (occurrence: US)
  Receive Date: 20180918
  Receipt Date: 20180918
  Transmission Date: 20181010
  Serious: Yes (Other)
  Sender: FDA-Public Use
  Company Number: US-AMGEN-USASP2018126945

PATIENT
  Sex: Female

DRUGS (3)
  1. BONIVA [Concomitant]
     Active Substance: IBANDRONATE SODIUM
  2. PROLIA [Suspect]
     Active Substance: DENOSUMAB
     Indication: OSTEOPOROSIS POSTMENOPAUSAL
     Dosage: UNK, Q6MO
     Route: 065
     Dates: start: 2016
  3. FOSAMAX [Concomitant]
     Active Substance: ALENDRONATE SODIUM

REACTIONS (3)
  - Thoracic vertebral fracture [Not Recovered/Not Resolved]
  - Drug ineffective [Unknown]
  - Pain in extremity [Not Recovered/Not Resolved]
